FAERS Safety Report 5651209-0 (Version None)
Quarter: 2008Q1

REPORT INFORMATION
  Report Type: 
  Country: None (occurrence: None)
  Receive Date: 20080305
  Receipt Date: 20080229
  Transmission Date: 20080703
  Serious: Yes (Hospitalization)
  Sender: FDA-Public Use
  Company Number: DE-BAYER-200813529GPV

PATIENT
  Age: 62 Year
  Sex: Male

DRUGS (3)
  1. MAGNEVIST [Suspect]
     Indication: NUCLEAR MAGNETIC RESONANCE IMAGING BRAIN
     Route: 042
     Dates: start: 20080201
  2. MAGNEVIST [Suspect]
     Route: 065
     Dates: start: 20080215, end: 20080215
  3. NOVALGIN [Concomitant]
     Indication: BONE PAIN
     Route: 048
     Dates: end: 20080213

REACTIONS (2)
  - HEPATITIS ACUTE [None]
  - TRANSAMINASES INCREASED [None]
